FAERS Safety Report 8559372-9 (Version None)
Quarter: 2012Q3

REPORT INFORMATION
  Report Type: 
  Country: None (occurrence: None)
  Receive Date: 20120720
  Receipt Date: 20120629
  Transmission Date: 20120928
  Serious: Yes (Other)
  Sender: FDA-Public Use
  Company Number: FRA-CLT-2012042

PATIENT
  Sex: Male

DRUGS (7)
  1. CYSTADANE [Suspect]
     Indication: HOMOCYSTINURIA
     Dosage: 4 G /1 DAYS, 3 G EVERY DAY, 4 G EVERY DAY, 3 G EVERY DAY ORAL
     Route: 048
     Dates: start: 20100907
  2. CYSTADANE [Suspect]
     Indication: HOMOCYSTINURIA
     Dosage: 4 G /1 DAYS, 3 G EVERY DAY, 4 G EVERY DAY, 3 G EVERY DAY ORAL
     Route: 048
     Dates: start: 20090409, end: 20100420
  3. CYSTADANE [Suspect]
     Indication: HOMOCYSTINURIA
     Dosage: 4 G /1 DAYS, 3 G EVERY DAY, 4 G EVERY DAY, 3 G EVERY DAY ORAL
     Route: 048
     Dates: start: 20001112, end: 20090408
  4. CYSTADANE [Suspect]
     Indication: HOMOCYSTINURIA
     Dosage: 4 G /1 DAYS, 3 G EVERY DAY, 4 G EVERY DAY, 3 G EVERY DAY ORAL
     Route: 048
     Dates: start: 20100421, end: 20100906
  5. VITAMIN B6 [Concomitant]
  6. FOLIC ACID [Concomitant]
  7. VITAMIN B-12 [Concomitant]

REACTIONS (11)
  - AMINO ACID LEVEL DECREASED [None]
  - MARFAN'S SYNDROME [None]
  - INGUINAL HERNIA [None]
  - ABNORMAL BEHAVIOUR [None]
  - MITRAL VALVE INCOMPETENCE [None]
  - ENURESIS [None]
  - WRIST FRACTURE [None]
  - KYPHOSIS [None]
  - AMINO ACID LEVEL INCREASED [None]
  - PULMONARY EMBOLISM [None]
  - BLOOD HOMOCYSTEINE INCREASED [None]
